FAERS Safety Report 24827309 (Version 1)
Quarter: 2025Q1

REPORT INFORMATION
  Report Type: Spontaneous
  Country: US (occurrence: US)
  Receive Date: 20250109
  Receipt Date: 20250109
  Transmission Date: 20250408
  Serious: No
  Sender: SANOFI AVENTIS
  Company Number: US-SA-2025SA007671

PATIENT
  Sex: Female

DRUGS (2)
  1. DUPIXENT [Suspect]
     Active Substance: DUPILUMAB
     Indication: Dermatitis
     Dosage: 300 MG, QOW
     Route: 058
     Dates: start: 201806
  2. INGREZZA [Suspect]
     Active Substance: VALBENAZINE

REACTIONS (3)
  - Tremor [Unknown]
  - Condition aggravated [Recovered/Resolved]
  - Product use in unapproved indication [Unknown]
